FAERS Safety Report 7331203-4 (Version None)
Quarter: 2011Q1

REPORT INFORMATION
  Report Type: 
  Country: None (occurrence: None)
  Receive Date: 20110304
  Receipt Date: 20110302
  Transmission Date: 20110831
  Serious: Yes (Other)
  Sender: FDA-Public Use
  Company Number: CH-PFIZER INC-2011019389

PATIENT
  Age: 68 Year
  Sex: Male
  Weight: 110 kg

DRUGS (2)
  1. TOVIAZ [Suspect]
     Indication: BLADDER DISORDER
     Dosage: 8 MG, 1X/DAY
     Route: 048
     Dates: start: 20090101
  2. TOVIAZ [Suspect]
     Dosage: 4 MG, UNK
     Dates: start: 20100101

REACTIONS (2)
  - AGGRESSION [None]
  - IRRITABILITY [None]
